FAERS Safety Report 8470502-X (Version None)
Quarter: 2012Q2

REPORT INFORMATION
  Report Type: 
  Country: None (occurrence: None)
  Receive Date: 20120627
  Receipt Date: 20110819
  Transmission Date: 20120825
  Serious: No
  Sender: FDA-Public Use
  Company Number: US-MYLANLABS-2011S1017405

PATIENT
  Age: 66 Year
  Sex: Male
  Weight: 89.81 kg

DRUGS (12)
  1. PREDNISONE TAB [Concomitant]
     Dates: start: 19930101
  2. PULMICORT [Concomitant]
     Dates: start: 20070101
  3. DIOVAN HCT [Concomitant]
     Dates: start: 19940101
  4. CRESTOR [Concomitant]
     Dates: start: 20080101
  5. POTASSIUM ACETATE [Concomitant]
     Dates: start: 19930101
  6. ALBUTEROL [Concomitant]
     Dates: start: 19920101
  7. LASIX [Concomitant]
     Dates: start: 19980101
  8. PERFOROMIST [Suspect]
     Indication: CHRONIC OBSTRUCTIVE PULMONARY DISEASE
     Route: 055
     Dates: start: 20090601
  9. ALBUTEROL [Concomitant]
     Dates: start: 20050101
  10. ZAFIRLUKAST [Concomitant]
     Dates: start: 20070101
  11. SPIRIVA [Concomitant]
     Dates: start: 20070101, end: 20110814
  12. ACIPHEX [Concomitant]
     Dates: start: 20080101

REACTIONS (4)
  - PRODUCTIVE COUGH [None]
  - RESPIRATORY TRACT CONGESTION [None]
  - FATIGUE [None]
  - INSOMNIA [None]
